FAERS Safety Report 8456294-9 (Version None)
Quarter: 2012Q2

REPORT INFORMATION
  Report Type: 
  Country: None (occurrence: None)
  Receive Date: 20120621
  Receipt Date: 20120606
  Transmission Date: 20120825
  Serious: Yes (Other)
  Sender: FDA-Public Use
  Company Number: US-ROCHE-1076240

PATIENT

DRUGS (1)
  1. MABTHERA [Suspect]
     Indication: RHEUMATOID ARTHRITIS

REACTIONS (3)
  - NEOPLASM MALIGNANT [None]
  - INFECTION [None]
  - CARDIOVASCULAR DISORDER [None]
